FAERS Safety Report 8899912 (Version 1)
Quarter: 2012Q4

REPORT INFORMATION
  Report Type: 
  Country: NO (occurrence: NO)
  Receive Date: 20121109
  Receipt Date: 20121109
  Transmission Date: 20130627
  Serious: Yes (Life-Threatening, Other)
  Sender: FDA-Public Use
  Company Number: PHHY2012NO101278

PATIENT
  Sex: Female

DRUGS (3)
  1. OXALIPLATIN [Suspect]
     Indication: GASTRIC CANCER
     Dosage: 3-4 hour IV infusion of 225 mg
     Route: 041
  2. OXALIPLATIN [Suspect]
     Indication: ADJUVANT THERAPY
  3. GLUCOSE [Concomitant]
     Route: 058

REACTIONS (8)
  - Dyspnoea [Recovered/Resolved]
  - Dysaesthesia pharynx [Unknown]
  - Confusional state [Recovered/Resolved]
  - Tachycardia [Unknown]
  - Hyperventilation [Unknown]
  - Blood lactic acid increased [Recovered/Resolved]
  - Presyncope [Unknown]
  - Blood pressure systolic increased [Recovered/Resolved]
